FAERS Safety Report 7406665-4 (Version None)
Quarter: 2011Q2

REPORT INFORMATION
  Report Type: 
  Country: None (occurrence: None)
  Receive Date: 20110411
  Receipt Date: 20110331
  Transmission Date: 20111010
  Serious: Yes (Other)
  Sender: FDA-Public Use
  Company Number: DE-ASTRAZENECA-2011SE19497

PATIENT
  Age: 69 Year
  Sex: Male

DRUGS (1)
  1. BELOC-ZOK COMP [Suspect]
     Route: 048

REACTIONS (6)
  - RENAL DISORDER [None]
  - DIARRHOEA [None]
  - BLOOD CREATININE INCREASED [None]
  - RENAL PAIN [None]
  - HYPOVOLAEMIA [None]
  - SHORT-BOWEL SYNDROME [None]
